FAERS Safety Report 8764803 (Version 1)
Quarter: 2012Q4

REPORT INFORMATION
  Report Type: 
  Country: US (occurrence: US)
  Receive Date: 20120831
  Receipt Date: 20120831
  Transmission Date: 20130627
  Serious: Yes (Other)
  Sender: FDA-Public Use
  Company Number: PHHY2012US075491

PATIENT
  Sex: Female

DRUGS (2)
  1. BUFFERIN [Suspect]
     Route: 048
  2. EXCEDRIN [Concomitant]

REACTIONS (1)
  - Drug dependence [Unknown]
